FAERS Safety Report 5309283-7 (Version None)
Quarter: 2007Q2

REPORT INFORMATION
  Report Type: 
  Country: None (occurrence: None)
  Receive Date: 20070427
  Receipt Date: 20070418
  Transmission Date: 20071010
  Serious: Yes (Hospitalization)
  Sender: FDA-Public Use
  Company Number: JP-ROCHE-490414

PATIENT
  Age: 25 Year
  Sex: Male

DRUGS (3)
  1. TAMIFLU [Suspect]
     Route: 048
     Dates: start: 20070322, end: 20070322
  2. TAMIFLU [Suspect]
     Dosage: A TOTAL OF 4 CAPSULES WERE ADMINISTERED IN THE MORNINGS AND EVENINGS.
     Route: 048
     Dates: start: 20070315, end: 20070316
  3. ACETAMINOPHEN [Concomitant]

REACTIONS (1)
  - LOSS OF CONSCIOUSNESS [None]
